FAERS Safety Report 5360829-2 (Version None)
Quarter: 2007Q2

REPORT INFORMATION
  Report Type: 
  Country: None (occurrence: None)
  Receive Date: 20070618
  Receipt Date: 20070611
  Transmission Date: 20071010
  Serious: Yes (Other)
  Sender: FDA-Public Use
  Company Number: DK-SHR-DK-2007-016523

PATIENT
  Age: 37 Year
  Sex: Female

DRUGS (1)
  1. LEVONORGESTREL [Suspect]
     Dosage: 20 A?G/DAY, CONT
     Route: 015
     Dates: start: 20070213, end: 20070426

REACTIONS (2)
  - HISTOLOGY ABNORMAL [None]
  - PAIN [None]
